FAERS Safety Report 4846266-5 (Version None)
Quarter: 2005Q4

REPORT INFORMATION
  Report Type: 
  Country: None (occurrence: None)
  Receive Date: 20051206
  Receipt Date: 20051128
  Transmission Date: 20060501
  Serious: Yes (Hospitalization)
  Sender: FDA-Public Use
  Company Number: NL-SANOFI-SYNTHELABO-F01200502636

PATIENT
  Sex: Female

DRUGS (7)
  1. OXALIPLATIN [Suspect]
     Indication: COLORECTAL CANCER
     Dosage: 100 MG
     Route: 041
     Dates: start: 20051125, end: 20051125
  2. CAPECITABINE [Suspect]
     Dosage: 1300MG X2
     Route: 048
     Dates: start: 20051125
  3. BEVACIZUMAB [Suspect]
     Dosage: 330
     Dates: start: 20051125, end: 20051125
  4. ENALAPRIL [Concomitant]
     Route: 048
  5. HYDROCHLOROTHIAZIDE [Concomitant]
     Route: 048
  6. DEXAMETHASONE [Concomitant]
     Route: 042
  7. TAVEGIL [Concomitant]
     Route: 042

REACTIONS (4)
  - DIZZINESS [None]
  - DYSARTHRIA [None]
  - DYSPNOEA [None]
  - STRIDOR [None]
